FAERS Safety Report 14382193 (Version 5)
Quarter: 2018Q4

REPORT INFORMATION
  Report Type: Spontaneous
  Country: US (occurrence: US)
  Receive Date: 20180112
  Receipt Date: 20181210
  Transmission Date: 20190204
  Serious: No
  Sender: FDA-Public Use
  Company Number: US-ACTELION-A-NJ2018-165704

PATIENT
  Age: 63 Year
  Sex: Female

DRUGS (2)
  1. OPSUMIT [Suspect]
     Active Substance: MACITENTAN
     Indication: PRODUCT USED FOR UNKNOWN INDICATION
     Dosage: 10 MG, QD
     Route: 048
     Dates: start: 20171208
  2. BIOTIN [Concomitant]
     Active Substance: BIOTIN

REACTIONS (6)
  - Ear infection [Unknown]
  - Condition aggravated [Recovering/Resolving]
  - Tongue geographic [Recovered/Resolved]
  - Sinusitis [Not Recovered/Not Resolved]
  - Tongue erythema [Recovering/Resolving]
  - Nasopharyngitis [Unknown]

NARRATIVE: CASE EVENT DATE: 20180109
